FAERS Safety Report 4925040-5 (Version None)
Quarter: 2006Q1

REPORT INFORMATION
  Report Type: 
  Country: None (occurrence: None)
  Receive Date: 20060127
  Receipt Date: 20051221
  Transmission Date: 20060701
  Serious: Yes (Other)
  Sender: FDA-Public Use
  Company Number: 2005173566

PATIENT
  Age: 68 Year
  Sex: Male
  Weight: 81.6475 kg

DRUGS (3)
  1. LYRICA [Suspect]
     Indication: NEUROPATHY PERIPHERAL
     Dosage: 150 MG (75 MG, BID INTERVAL:  EVERY DAY)
     Dates: start: 20051220, end: 20051221
  2. VITAMINS [Concomitant]
  3. ACETYLSALICYLIC ACID SRT [Concomitant]

REACTIONS (3)
  - BOWEL MOVEMENT IRREGULARITY [None]
  - DYSURIA [None]
  - SOMNOLENCE [None]
